FAERS Safety Report 25986644 (Version 2)
Quarter: 2025Q4

REPORT INFORMATION
  Report Type: Report from Study
  Country: CA (occurrence: CA)
  Receive Date: 20251031
  Receipt Date: 20251114
  Transmission Date: 20260118
  Serious: Yes (Death)
  Sender: ABBVIE
  Company Number: CA-ABBVIE-6527561

PATIENT
  Age: 65 Year
  Sex: Male

DRUGS (1)
  1. LUPRON [Suspect]
     Active Substance: LEUPROLIDE ACETATE
     Indication: Prostate cancer
     Dosage: FORM STREGTH:22.5 MG?DOSE FORM : POWDER AND SOLVENT FOR SUSPENSION FOR INJECTION IN PRE-FILLED SY...
     Route: 030
     Dates: start: 20240709, end: 20250820

REACTIONS (1)
  - Death [Fatal]

NARRATIVE: CASE EVENT DATE: 20251003
